FAERS Safety Report 21260941 (Version 1)
Quarter: 2022Q3

REPORT INFORMATION
  Report Type: Spontaneous
  Country: US (occurrence: US)
  Receive Date: 20220826
  Receipt Date: 20220826
  Transmission Date: 20221027
  Serious: No
  Sender: FDA-Public Use
  Company Number: US-009507513-2208USA002631

PATIENT
  Age: 2 Year
  Sex: Female

DRUGS (3)
  1. PEGINTRON [Suspect]
     Active Substance: PEGINTERFERON ALFA-2B
     Indication: Craniopharyngioma
  2. PEGINTRON [Suspect]
     Active Substance: PEGINTERFERON ALFA-2B
     Indication: Ependymoma
  3. INTRON A [Suspect]
     Active Substance: INTERFERON ALFA-2B

REACTIONS (2)
  - Product use in unapproved indication [Unknown]
  - Product use issue [Unknown]
